FAERS Safety Report 7906145-3 (Version None)
Quarter: 2011Q4

REPORT INFORMATION
  Report Type: 
  Country: None (occurrence: None)
  Receive Date: 20111109
  Receipt Date: 20111109
  Transmission Date: 20120403
  Serious: No
  Sender: FDA-Public Use
  Company Number: None

PATIENT
  Age: 47 Year
  Sex: Female
  Weight: 113.3993 kg

DRUGS (2)
  1. CITALOPRAM HYDROBROMIDE [Suspect]
     Indication: DEPRESSION
     Dosage: 40 MG-QTY 30 ONCE DAILY ORAL
     Route: 048
     Dates: start: 20110801, end: 20111101
  2. CITALOPRAM HYDROBROMIDE [Suspect]
     Indication: ANXIETY
     Dosage: 40 MG-QTY 30 ONCE DAILY ORAL
     Route: 048
     Dates: start: 20110801, end: 20111101

REACTIONS (3)
  - PRURITUS [None]
  - ALOPECIA [None]
  - RASH [None]
